FAERS Safety Report 9710556 (Version 2)
Quarter: 2013Q4

REPORT INFORMATION
  Report Type: Spontaneous
  Country: US (occurrence: US)
  Receive Date: 20131126
  Receipt Date: 20131126
  Transmission Date: 20140711
  Serious: No
  Sender: FDA-Public Use
  Company Number: US-BRISTOL-MYERS SQUIBB COMPANY-18890582

PATIENT
  Age: 38 Year
  Sex: Female
  Weight: 121.08 kg

DRUGS (12)
  1. BYETTA [Suspect]
     Indication: TYPE 2 DIABETES MELLITUS
     Dosage: MOVED UP TO THE 10MCG BID
  2. LANTUS [Concomitant]
     Indication: TYPE 2 DIABETES MELLITUS
     Dosage: 1DF = 60 UNITS
  3. HUMALOG [Concomitant]
     Indication: TYPE 2 DIABETES MELLITUS
     Dosage: 1DF= 15UNITS
  4. DEPAKOTE [Concomitant]
  5. ABILIFY [Concomitant]
  6. AMITRIPTYLINE [Concomitant]
  7. WELLBUTRIN [Concomitant]
  8. METOPROLOL [Concomitant]
  9. SIMVASTATIN [Concomitant]
  10. VITAMIN D [Concomitant]
  11. VALPROIC ACID [Concomitant]
  12. ACYCLOVIR [Concomitant]

REACTIONS (2)
  - Hepatic enzyme increased [Not Recovered/Not Resolved]
  - Product quality issue [Unknown]
